FAERS Safety Report 10218768 (Version 1)
Quarter: 2014Q2

REPORT INFORMATION
  Report Type: Spontaneous
  Country: US (occurrence: None)
  Receive Date: 20140603
  Receipt Date: 20140603
  Transmission Date: 20141212
  Serious: Yes (Other)
  Sender: FDA-Public Use
  Company Number: ADR-2014-00495

PATIENT
  Age: 19 Year
  Sex: Male

DRUGS (1)
  1. LIORESAL INTRATHECAL (BACLOFEN INJECTION) 2000MCG/ML [Suspect]
     Indication: MUSCLE SPASTICITY

REACTIONS (5)
  - Device issue [None]
  - Muscle tightness [None]
  - Underdose [None]
  - Hypotonia [None]
  - Dystonia [None]
